FAERS Safety Report 6581653-9 (Version None)
Quarter: 2010Q1

REPORT INFORMATION
  Report Type: 
  Country: None (occurrence: None)
  Receive Date: 20100211
  Receipt Date: 20100211
  Transmission Date: 20100710
  Serious: No
  Sender: FDA-Public Use
  Company Number: None

PATIENT
  Sex: Male

DRUGS (1)
  1. DEPAKOTE ER [Suspect]
     Dosage: 5000MG TWICE AM THREE TIMES PM PO
     Route: 048

REACTIONS (1)
  - NO ADVERSE EVENT [None]
